FAERS Safety Report 11624148 (Version 1)
Quarter: 2015Q4

REPORT INFORMATION
  Report Type: Spontaneous
  Country: US (occurrence: None)
  Receive Date: 20151009
  Receipt Date: 20151009
  Transmission Date: 20160304
  Serious: Yes (Hospitalization)
  Sender: FDA-Public Use
  Company Number: None

PATIENT
  Age: 74 Year
  Sex: Female
  Weight: 70.08 kg

DRUGS (22)
  1. WELLBUTRIN SR (BUPROPION HCL) [Concomitant]
  2. OXYBUTYNIN CHLORIDE. [Concomitant]
     Active Substance: OXYBUTYNIN CHLORIDE
  3. POTASSIUM CHLORIDE ER CR [Concomitant]
  4. RESTASIS 0.05% EMUL (CYCLOSPORINE) [Concomitant]
  5. FUROSEMIDE. [Concomitant]
     Active Substance: FUROSEMIDE
  6. MIRALAX ORAL PACK (POLYETHYLENE GLYCOL 3350) [Concomitant]
  7. NEXIUM [Concomitant]
     Active Substance: ESOMEPRAZOLE MAGNESIUM
  8. ADCIRCA (TADALAFIL(PAH)) [Concomitant]
  9. ASPIRIN EC LOW DOSE [Concomitant]
  10. CLOPIDOGREL BISULFATE. [Concomitant]
     Active Substance: CLOPIDOGREL BISULFATE
  11. IPRATROPIUM BROMIDE SOLN [Concomitant]
  12. SPIRONOLACTONE. [Concomitant]
     Active Substance: SPIRONOLACTONE
  13. PROAIR HFA (ALBUTEROL SULFATE) [Concomitant]
  14. ATORVASTATIN CALCIUM. [Concomitant]
     Active Substance: ATORVASTATIN CALCIUM
  15. OPSUMIT [Concomitant]
     Active Substance: MACITENTAN
  16. MICARDIS [Concomitant]
     Active Substance: TELMISARTAN
  17. LOTEMAX (LOTEPREDNOL ETABONATE) [Concomitant]
  18. DOMPERIDONE [Suspect]
     Active Substance: DOMPERIDONE
     Indication: IMPAIRED GASTRIC EMPTYING
     Dosage: 20 MG PO TID 047
     Route: 048
     Dates: start: 201208
  19. PREMARIN [Concomitant]
     Active Substance: ESTROGENS, CONJUGATED
  20. DESLORATADINE. [Concomitant]
     Active Substance: DESLORATADINE
  21. AZELASTINE HCL SOLN [Concomitant]
  22. DOCUSATE SODIUM. [Concomitant]
     Active Substance: DOCUSATE SODIUM

REACTIONS (1)
  - Dyspnoea [None]

NARRATIVE: CASE EVENT DATE: 20150908
